FAERS Safety Report 12172711 (Version 1)
Quarter: 2016Q1

REPORT INFORMATION
  Report Type: Spontaneous
  Country: US (occurrence: US)
  Receive Date: 20160311
  Receipt Date: 20160311
  Transmission Date: 20160526
  Serious: Yes (Life-Threatening)
  Sender: FDA-Public Use
  Company Number: US-BAYER-2016-048181

PATIENT
  Sex: Female

DRUGS (1)
  1. MIRENA [Suspect]
     Active Substance: LEVONORGESTREL
     Dosage: 20 MCG/24HR, CONT
     Route: 015
     Dates: start: 20160111, end: 20160225

REACTIONS (7)
  - Oedema peripheral [Recovered/Resolved]
  - Swelling [Recovered/Resolved]
  - Pain [None]
  - Face oedema [Recovered/Resolved]
  - Carpal tunnel syndrome [Recovered/Resolved]
  - Localised oedema [Recovered/Resolved]
  - Fear [Recovered/Resolved]

NARRATIVE: CASE EVENT DATE: 201601
